FAERS Safety Report 8951630 (Version 1)
Quarter: 2012Q4

REPORT INFORMATION
  Report Type: 
  Country: IT (occurrence: IT)
  Receive Date: 20121204
  Receipt Date: 20121204
  Transmission Date: 20130627
  Serious: Yes (Hospitalization)
  Sender: FDA-Public Use
  Company Number: IT-ROCHE-1163505

PATIENT

DRUGS (2)
  1. AVASTIN [Suspect]
     Indication: COLORECTAL CANCER
     Route: 042
     Dates: start: 20111202, end: 20111202
  2. CAPECITABINE [Concomitant]
     Route: 048
     Dates: start: 20111202, end: 20111206

REACTIONS (2)
  - Anxiety [Recovering/Resolving]
  - Cardiac failure [Recovering/Resolving]
